FAERS Safety Report 7988398-9 (Version None)
Quarter: 2011Q4

REPORT INFORMATION
  Report Type: 
  Country: None (occurrence: None)
  Receive Date: 20111216
  Receipt Date: 20111213
  Transmission Date: 20120403
  Serious: Yes (Hospitalization, Other)
  Sender: FDA-Public Use
  Company Number: NL-ABBOTT-11P-114-0883390-00

PATIENT
  Sex: Male
  Weight: 85 kg

DRUGS (2)
  1. HUMIRA [Suspect]
     Indication: RHEUMATOID ARTHRITIS
     Route: 058
     Dates: start: 20110101
  2. METHOTREXATE SODIUM [Suspect]
     Indication: RHEUMATOID ARTHRITIS
     Dosage: FORM STRENGTH 50 MG/ML
     Route: 030
     Dates: start: 20111129

REACTIONS (3)
  - PANCREATITIS ACUTE [None]
  - PAIN [None]
  - BILE DUCT OBSTRUCTION [None]
